FAERS Safety Report 4431087-8 (Version None)
Quarter: 2004Q3

REPORT INFORMATION
  Report Type: 
  Country: None (occurrence: None)
  Receive Date: 20040817
  Receipt Date: 20040806
  Transmission Date: 20050211
  Serious: Yes (Hospitalization)
  Sender: FDA-Public Use
  Company Number: 2004227504DE

PATIENT
  Age: 16 Year
  Sex: Male

DRUGS (1)
  1. HEPARIN SODIUM [Suspect]
     Indication: THROMBOSIS PROPHYLAXIS

REACTIONS (3)
  - HEPARIN-INDUCED THROMBOCYTOPENIA [None]
  - PHLEBITIS [None]
  - SEPSIS [None]
